FAERS Safety Report 13239055 (Version 2)
Quarter: 2017Q1

REPORT INFORMATION
  Report Type: Spontaneous
  Country: US (occurrence: US)
  Receive Date: 20170216
  Receipt Date: 20170216
  Transmission Date: 20170428
  Serious: Yes (Other)
  Sender: FDA-Public Use
  Company Number: US-JNJFOC-20170208601

PATIENT
  Age: 22 Year
  Sex: Male
  Weight: 70 kg

DRUGS (1)
  1. STELARA [Suspect]
     Active Substance: USTEKINUMAB
     Indication: PSORIASIS
     Dosage: HAS RECEIVED 1 DOSE
     Route: 058

REACTIONS (6)
  - Anal fistula [Unknown]
  - Lip haemorrhage [Unknown]
  - Swelling face [Unknown]
  - Lip swelling [Unknown]
  - Rosacea [Unknown]
  - Nasal oedema [Unknown]

NARRATIVE: CASE EVENT DATE: 201702
